FAERS Safety Report 5073160-X (Version None)
Quarter: 2006Q3

REPORT INFORMATION
  Report Type: 
  Country: None (occurrence: None)
  Receive Date: 20060803
  Receipt Date: 20060724
  Transmission Date: 20061208
  Serious: Yes (Death, Other)
  Sender: FDA-Public Use
  Company Number: 2006091376

PATIENT
  Age: 70 Year
  Sex: Female

DRUGS (3)
  1. BEXTRA [Suspect]
     Indication: PAIN IN EXTREMITY
     Dosage: (40 MG), ORAL
     Route: 048
  2. AMIODARONE HCL [Concomitant]
  3. RANITIDINE [Concomitant]

REACTIONS (2)
  - CARDIAC ARREST [None]
  - MYOCARDIAL INFARCTION [None]
